FAERS Safety Report 4604533-4 (Version None)
Quarter: 2005Q1

REPORT INFORMATION
  Report Type: 
  Country: None (occurrence: None)
  Receive Date: 20050310
  Receipt Date: 20050227
  Transmission Date: 20050727
  Serious: Yes (Hospitalization)
  Sender: FDA-Public Use
  Company Number: GB-MERCK-0503GBR00010

PATIENT
  Age: 60 Year
  Sex: Female

DRUGS (4)
  1. ZOCOR [Suspect]
     Route: 048
  2. CLOPIDOGREL BISULFATE [Concomitant]
     Route: 065
  3. OMEPRAZOLE [Concomitant]
     Route: 065
  4. RAMIPRIL [Concomitant]
     Route: 065

REACTIONS (4)
  - DIARRHOEA [None]
  - DRUG LEVEL INCREASED [None]
  - HEPATITIS A [None]
  - MYOSITIS [None]
